FAERS Safety Report 6470402-0 (Version None)
Quarter: 2009Q4

REPORT INFORMATION
  Report Type: 
  Country: None (occurrence: None)
  Receive Date: 20091203
  Receipt Date: 20091126
  Transmission Date: 20100525
  Serious: Yes (Other)
  Sender: FDA-Public Use
  Company Number: GB-BRISTOL-MYERS SQUIBB COMPANY-14876163

PATIENT
  Age: 56 Year
  Sex: Male

DRUGS (3)
  1. ERBITUX [Suspect]
     Indication: NASOPHARYNGEAL CANCER
  2. CISPLATIN [Suspect]
     Indication: NASOPHARYNGEAL CANCER
  3. FLUOROURACIL [Suspect]
     Indication: NASOPHARYNGEAL CANCER

REACTIONS (2)
  - ARTERIAL THROMBOSIS [None]
  - CEREBROVASCULAR ACCIDENT [None]
